FAERS Safety Report 19494034 (Version 1)
Quarter: 2021Q3

REPORT INFORMATION
  Report Type: Spontaneous
  Country: US (occurrence: US)
  Receive Date: 20210705
  Receipt Date: 20210705
  Transmission Date: 20211014
  Serious: No
  Sender: FDA-Public Use
  Company Number: US-AMGEN-USASP2021100614

PATIENT
  Age: 78 Year
  Sex: Male

DRUGS (3)
  1. TALIMOGENE LAHERPAREPVEC [Suspect]
     Active Substance: TALIMOGENE LAHERPAREPVEC
     Indication: NEUROENDOCRINE CARCINOMA OF THE SKIN
     Dosage: UNK (2 ML OF 10^6 PLAQUE?FORMING UNITS/ML)
     Route: 026
  2. TALIMOGENE LAHERPAREPVEC [Suspect]
     Active Substance: TALIMOGENE LAHERPAREPVEC
     Indication: OFF LABEL USE
     Dosage: UNK UNK, Q2WK (TOTAL DOSAGE PER TREATMENT CYCLE OF 1?3 ML OF 10^8 PLAQUE?FORMING UNITS/ML)
     Route: 026
  3. CYCLOSPORINE. [Concomitant]
     Active Substance: CYCLOSPORINE
     Dosage: 50 MILLIGRAM, BID

REACTIONS (3)
  - Fatigue [Unknown]
  - Off label use [Unknown]
  - Drug effective for unapproved indication [Unknown]
